FAERS Safety Report 8429000-1 (Version None)
Quarter: 2012Q2

REPORT INFORMATION
  Report Type: 
  Country: None (occurrence: None)
  Receive Date: 20120612
  Receipt Date: 20120223
  Transmission Date: 20120825
  Serious: No
  Sender: FDA-Public Use
  Company Number: US-COVIDIEN/TYCO HEALTHCARE/MALLINCKRODT-T201200453

PATIENT
  Age: 77 Year
  Sex: Female

DRUGS (3)
  1. ULTRATAG [Suspect]
     Indication: RADIOISOTOPE SCAN
     Dosage: UNK UNK, SINGLE
     Dates: start: 20120116, end: 20120116
  2. TECHNETIUM TC 99M GENERATOR [Concomitant]
     Indication: RADIOISOTOPE SCAN
     Dosage: 27.8 MCI, SINGLE
     Dates: start: 20120116, end: 20120116
  3. HEPARIN [Concomitant]
     Dosage: UNK
     Dates: start: 20120116, end: 20120116

REACTIONS (1)
  - DRUG INEFFECTIVE [None]
